FAERS Safety Report 21361004 (Version 1)
Quarter: 2022Q3

REPORT INFORMATION
  Report Type: Report from Study
  Country: CA (occurrence: CA)
  Receive Date: 20220921
  Receipt Date: 20220921
  Transmission Date: 20221026
  Serious: Yes (Hospitalization, Other)
  Sender: FDA-Public Use
  Company Number: CA-HLS-202201600

PATIENT
  Age: 62 Year
  Sex: Female

DRUGS (2)
  1. CLOZARIL [Suspect]
     Active Substance: CLOZAPINE
     Indication: Product used for unknown indication
     Dosage: UNKNOWN
     Route: 048
     Dates: start: 20220721
  2. CLOZARIL [Suspect]
     Active Substance: CLOZAPINE
     Indication: Product used for unknown indication
     Dosage: UNKNOWN
     Route: 048
     Dates: start: 20220721, end: 20220820

REACTIONS (10)
  - Acute kidney injury [Unknown]
  - Neutropenia [Unknown]
  - Neutrophilia [Not Recovered/Not Resolved]
  - Blood creatinine increased [Unknown]
  - Pyrexia [Unknown]
  - Endotracheal intubation [Unknown]
  - Pneumonia [Unknown]
  - Septic shock [Unknown]
  - Leukopenia [Unknown]
  - Leukocytosis [Not Recovered/Not Resolved]

NARRATIVE: CASE EVENT DATE: 20220818
